FAERS Safety Report 8486663-2 (Version None)
Quarter: 2012Q3

REPORT INFORMATION
  Report Type: 
  Country: None (occurrence: None)
  Receive Date: 20120703
  Receipt Date: 20120625
  Transmission Date: 20120928
  Serious: Yes (Other)
  Sender: FDA-Public Use
  Company Number: AR-ABBOTT-12P-007-0939833-00

PATIENT
  Sex: Female

DRUGS (6)
  1. LEVOTYROXINA [Concomitant]
     Indication: HYPOTHYROIDISM
  2. GLUCOGAM [Concomitant]
     Indication: DIABETES MELLITUS
  3. OMEPRAZOLE [Concomitant]
     Indication: PRODUCT USED FOR UNKNOWN INDICATION
  4. METHOTREXATE [Concomitant]
     Indication: PRODUCT USED FOR UNKNOWN INDICATION
  5. HUMIRA [Suspect]
     Indication: PSORIATIC ARTHROPATHY
     Route: 058
     Dates: start: 20070601
  6. AMLODIPINE BESYLATE AND VALSARTAN [Concomitant]
     Indication: BLOOD PRESSURE ABNORMAL
     Dosage: 5/160 MG

REACTIONS (2)
  - EAR INFECTION [None]
  - TYMPANIC MEMBRANE PERFORATION [None]
